FAERS Safety Report 19839274 (Version 1)
Quarter: 2021Q3

REPORT INFORMATION
  Report Type: Spontaneous
  Country: US (occurrence: US)
  Receive Date: 20210915
  Receipt Date: 20210915
  Transmission Date: 20211014
  Serious: Yes (Disabling)
  Sender: FDA-Public Use
  Company Number: None

PATIENT
  Age: 74 Year
  Sex: Female
  Weight: 67.5 kg

DRUGS (16)
  1. ALLEGRA [Concomitant]
     Active Substance: FEXOFENADINE HYDROCHLORIDE
  2. DULOXETINE 120 MG [Suspect]
     Active Substance: DULOXETINE
  3. PREDNISONE. [Concomitant]
     Active Substance: PREDNISONE
  4. LEVOTHYROXINE. [Concomitant]
     Active Substance: LEVOTHYROXINE
  5. TRAMADOL. [Concomitant]
     Active Substance: TRAMADOL
  6. LORAZEPAM PM [Concomitant]
  7. FOLIC ACID. [Concomitant]
     Active Substance: FOLIC ACID
  8. PROBIOTICS [Concomitant]
     Active Substance: PROBIOTICS NOS
  9. TRINTELLIX [Suspect]
     Active Substance: VORTIOXETINE HYDROBROMIDE
     Indication: DEPRESSION
     Dosage: ?          QUANTITY:30 TABLET(S);?
     Route: 048
     Dates: start: 20210908, end: 20210912
  10. CALCIUM/VIT D [Concomitant]
  11. ACETAMINOPHEN. [Concomitant]
     Active Substance: ACETAMINOPHEN
  12. BUDESONIDE. [Concomitant]
     Active Substance: BUDESONIDE
  13. METHOTREXATE. [Concomitant]
     Active Substance: METHOTREXATE
  14. MELATONIN [Concomitant]
     Active Substance: MELATONIN
  15. LISINOPRIL. [Concomitant]
     Active Substance: LISINOPRIL
  16. ACYCLOVIR. [Concomitant]
     Active Substance: ACYCLOVIR

REACTIONS (1)
  - Nausea [None]

NARRATIVE: CASE EVENT DATE: 20210908
